FAERS Safety Report 24703035 (Version 1)
Quarter: 2024Q4

REPORT INFORMATION
  Report Type: Spontaneous
  Country: RU (occurrence: RU)
  Receive Date: 20241205
  Receipt Date: 20241205
  Transmission Date: 20250115
  Serious: Yes (Hospitalization, Other)
  Sender: PFIZER
  Company Number: RU-PFIZER INC-PV202400156604

PATIENT
  Age: 32 Year
  Sex: Male

DRUGS (1)
  1. BESPONSA [Suspect]
     Active Substance: INOTUZUMAB OZOGAMICIN
     Indication: Acute lymphocytic leukaemia
     Dosage: 0.8 MG PER M2 (1ST DAY); 2ND (8TH DAY) AND (15TH DAY) - AT DOSE 0.5 MG PER M2
     Route: 042
     Dates: start: 202404, end: 202405

REACTIONS (4)
  - Neurotoxicity [Recovered/Resolved]
  - Deep vein thrombosis [Recovered/Resolved]
  - Cytokine release syndrome [Recovered/Resolved]
  - Gastrointestinal disorder [Recovered/Resolved]
